FAERS Safety Report 6224347-1 (Version None)
Quarter: 2009Q2

REPORT INFORMATION
  Report Type: 
  Country: None (occurrence: None)
  Receive Date: 20090612
  Receipt Date: 20090316
  Transmission Date: 20091009
  Serious: No
  Sender: FDA-Public Use
  Company Number: US-ABBOTT-09P-163-0563058-00

PATIENT
  Sex: Female
  Weight: 65.83 kg

DRUGS (3)
  1. HUMIRA [Suspect]
     Indication: RHEUMATOID ARTHRITIS
     Dates: start: 20090306, end: 20090326
  2. LOVOXYL [Concomitant]
     Indication: THYROID DISORDER
  3. ESTRODIAL [Concomitant]
     Indication: OSTEOPOROSIS

REACTIONS (12)
  - CONSTIPATION [None]
  - DEHYDRATION [None]
  - EAR DISCOMFORT [None]
  - HEADACHE [None]
  - INJECTION SITE ERYTHEMA [None]
  - INJECTION SITE HAEMATOMA [None]
  - INJECTION SITE PRURITUS [None]
  - INJECTION SITE SWELLING [None]
  - INJECTION SITE WARMTH [None]
  - MALAISE [None]
  - RASH PRURITIC [None]
  - URTICARIA [None]
